FAERS Safety Report 15752553 (Version 5)
Quarter: 2019Q1

REPORT INFORMATION
  Report Type: Spontaneous
  Country: IT (occurrence: IT)
  Receive Date: 20181221
  Receipt Date: 20190123
  Transmission Date: 20190417
  Serious: Yes (Hospitalization, Disabling, Other)
  Sender: FDA-Public Use
  Company Number: PHHY2018IT187506

PATIENT
  Age: 63 Year
  Sex: Male

DRUGS (27)
  1. VORICONAZOLE. [Suspect]
     Active Substance: VORICONAZOLE
     Dosage: UNK
     Route: 062
  2. CEFTRIAXONE. [Suspect]
     Active Substance: CEFTRIAXONE
     Indication: KERATITIS FUNGAL
     Dosage: UNK
     Route: 042
  3. OFLOXACIN. [Concomitant]
     Active Substance: OFLOXACIN
     Indication: KERATITIS FUNGAL
     Route: 065
  4. OFLOXACIN. [Concomitant]
     Active Substance: OFLOXACIN
     Dosage: 1 DRP, Q4H
     Route: 065
  5. CIPROFLOXACIN. [Concomitant]
     Active Substance: CIPROFLOXACIN
     Dosage: 500 MG, BID (TWICE DAILY FOR 6 DAYS)
     Route: 065
  6. NETILMICIN [Suspect]
     Active Substance: NETILMICIN
     Indication: KERATITIS FUNGAL
  7. CHLORAMPHENICOL [Suspect]
     Active Substance: CHLORAMPHENICOL
     Indication: CORNEAL ABSCESS
     Dosage: UNK
     Route: 065
  8. ATROPINE. [Concomitant]
     Active Substance: ATROPINE
     Indication: COMPLICATIONS OF TRANSPLANT SURGERY
  9. CIPROFLOXACIN. [Concomitant]
     Active Substance: CIPROFLOXACIN
     Dosage: 500 MG, BID
     Route: 065
  10. CIPROFLOXACIN. [Suspect]
     Active Substance: CIPROFLOXACIN
     Indication: PRODUCT USED FOR UNKNOWN INDICATION
     Route: 065
  11. ATROPINE. [Concomitant]
     Active Substance: ATROPINE
     Indication: CORNEAL ABSCESS
  12. CIPROFLOXACIN. [Concomitant]
     Active Substance: CIPROFLOXACIN
     Indication: KERATITIS FUNGAL
     Dosage: 1000 MILLIGRAM DAILY; FOR 6 DAYS
     Route: 048
  13. VORICONAZOLE. [Suspect]
     Active Substance: VORICONAZOLE
     Dosage: UNK
     Route: 057
  14. DEXAMETHASONE. [Suspect]
     Active Substance: DEXAMETHASONE
     Indication: CORNEAL ABSCESS
  15. OFLOXACIN. [Concomitant]
     Active Substance: OFLOXACIN
     Dosage: 1 GTT, QD
     Route: 061
  16. VORICONAZOLE. [Suspect]
     Active Substance: VORICONAZOLE
     Dosage: UNK
     Route: 065
  17. TETRACYCLINE [Suspect]
     Active Substance: TETRACYCLINE
     Indication: KERATITIS FUNGAL
     Route: 065
  18. CEFTRIAXONE. [Suspect]
     Active Substance: CEFTRIAXONE
     Indication: COMPLICATIONS OF TRANSPLANT SURGERY
  19. GENTAMICIN. [Concomitant]
     Active Substance: GENTAMICIN
     Indication: KERATITIS FUNGAL
     Dosage: UNK
     Route: 061
  20. VORICONAZOLE. [Suspect]
     Active Substance: VORICONAZOLE
     Indication: KERATITIS FUNGAL
     Dosage: 1 DRP, QH
     Route: 047
  21. BETAMETHASONE. [Suspect]
     Active Substance: BETAMETHASONE
     Indication: CORNEAL ABSCESS
     Dosage: UNK
     Route: 065
  22. PREDNISONE. [Suspect]
     Active Substance: PREDNISONE
     Indication: KERATITIS FUNGAL
     Dosage: 25 MG
     Route: 065
  23. NETILMICIN [Suspect]
     Active Substance: NETILMICIN
     Indication: COMPLICATIONS OF TRANSPLANT SURGERY
     Dosage: UNK
     Route: 065
  24. DEXAMETHASONE. [Suspect]
     Active Substance: DEXAMETHASONE
     Indication: KERATITIS FUNGAL
  25. NETILMICIN [Suspect]
     Active Substance: NETILMICIN
     Indication: CORNEAL ABSCESS
  26. DEXAMETHASONE. [Suspect]
     Active Substance: DEXAMETHASONE
     Indication: COMPLICATIONS OF TRANSPLANT SURGERY
     Dosage: UNK
     Route: 061
  27. ATROPINE. [Concomitant]
     Active Substance: ATROPINE
     Indication: KERATITIS FUNGAL
     Dosage: UNK
     Route: 065

REACTIONS (11)
  - Complications of transplant surgery [Unknown]
  - Condition aggravated [Unknown]
  - Keratitis fungal [Not Recovered/Not Resolved]
  - Necrosis [Recovered/Resolved with Sequelae]
  - Graft infection [Unknown]
  - Drug resistance [Unknown]
  - Infarction [Unknown]
  - Glaucoma [Unknown]
  - Visual acuity reduced [Unknown]
  - Iris disorder [Recovered/Resolved with Sequelae]
  - Corneal oedema [Unknown]

NARRATIVE: CASE EVENT DATE: 2015
